FAERS Safety Report 15718985 (Version 1)
Quarter: 2018Q4

REPORT INFORMATION
  Report Type: Spontaneous
  Country: US (occurrence: US)
  Receive Date: 20181129
  Receipt Date: 20181129
  Transmission Date: 20190205
  Serious: Yes (Hospitalization)
  Sender: FDA-Public Use
  Company Number: None

PATIENT
  Age: 42 Year
  Sex: Male

DRUGS (33)
  1. PREDNISONE. [Concomitant]
     Active Substance: PREDNISONE
  2. AZITHROMYCIN ANHYDROUS. [Concomitant]
     Active Substance: AZITHROMYCIN ANHYDROUS
  3. PROVENTIL [Concomitant]
     Active Substance: ALBUTEROL
  4. TRIGLIDE [Concomitant]
     Active Substance: FENOFIBRATE
  5. NARCAN [Concomitant]
     Active Substance: NALOXONE HYDROCHLORIDE
  6. ZOLPIDEM [Concomitant]
     Active Substance: ZOLPIDEM\ZOLPIDEM TARTRATE
  7. TIZANIDINE. [Concomitant]
     Active Substance: TIZANIDINE
  8. VALGANCICLOV [Concomitant]
  9. FUROSEMIDE. [Concomitant]
     Active Substance: FUROSEMIDE
  10. PANTOPRAZOLE [Concomitant]
     Active Substance: PANTOPRAZOLE
  11. ISOSORB MONO [Concomitant]
     Active Substance: ISOSORBIDE MONONITRATE
  12. LYRICA [Concomitant]
     Active Substance: PREGABALIN
  13. TOUJEO [Concomitant]
     Active Substance: INSULIN GLARGINE
  14. OXYCODONE [Concomitant]
     Active Substance: OXYCODONE
  15. LEVOFLOXACIN. [Concomitant]
     Active Substance: LEVOFLOXACIN
  16. AMLODIPINE [Concomitant]
     Active Substance: AMLODIPINE BESYLATE
  17. TACROLIMUS 1MG [Suspect]
     Active Substance: TACROLIMUS
  18. SMZ [Concomitant]
     Active Substance: SULFAMETHOXAZOLE\TRIMETHOPRIM
  19. MUPROCIN [Concomitant]
  20. SERTRALINE [Concomitant]
     Active Substance: SERTRALINE HYDROCHLORIDE
  21. MAG OXIDE [Concomitant]
     Active Substance: MAGNESIUM OXIDE
  22. MYCOPHENOLIC [Concomitant]
     Active Substance: MYCOPHENOLIC ACID
  23. CARVEDILOL. [Concomitant]
     Active Substance: CARVEDILOL
  24. TACROLIMUS 1MG [Suspect]
     Active Substance: TACROLIMUS
     Indication: HEART TRANSPLANT
     Route: 048
     Dates: start: 20180429
  25. AMODARONE [Concomitant]
  26. LORAZEPAM. [Concomitant]
     Active Substance: LORAZEPAM
  27. METFORMIN [Concomitant]
     Active Substance: METFORMIN HYDROCHLORIDE
  28. BENZONATATE. [Concomitant]
     Active Substance: BENZONATATE
  29. AMLODIPINE [Concomitant]
     Active Substance: AMLODIPINE BESYLATE
  30. ELIQUIS [Concomitant]
     Active Substance: APIXABAN
  31. HUMULIN NOS [Concomitant]
     Active Substance: INSULIN HUMAN
  32. NITROGLYCERN [Concomitant]
  33. ROSUVASTATIN. [Concomitant]
     Active Substance: ROSUVASTATIN

REACTIONS (1)
  - Post procedural complication [None]
